FAERS Safety Report 6448446-4 (Version None)
Quarter: 2009Q4

REPORT INFORMATION
  Report Type: 
  Country: None (occurrence: None)
  Receive Date: 20091120
  Receipt Date: 20091110
  Transmission Date: 20100525
  Serious: Yes (Other)
  Sender: FDA-Public Use
  Company Number: US-JNJFOC-20091103658

PATIENT
  Sex: Male
  Weight: 74.84 kg

DRUGS (11)
  1. REMICADE [Suspect]
     Indication: ARTHRITIS
     Route: 042
     Dates: start: 20030101, end: 20090604
  2. REMICADE [Suspect]
     Indication: CROHN'S DISEASE
     Dosage: DOSE: ^700 UNITS^
     Route: 042
     Dates: start: 20030101, end: 20090604
  3. FLUCONAZOLE [Concomitant]
     Indication: CANDIDIASIS
     Dosage: DURATION: 3 YEARS
  4. DONNATAL [Concomitant]
     Indication: MUSCLE SPASMS
  5. CALCIUM CITRATE [Concomitant]
  6. MULTI-VITAMINS [Concomitant]
  7. RANITIDINE [Concomitant]
     Indication: GASTROOESOPHAGEAL REFLUX DISEASE
     Dosage: DURATION: 6 MONTHS
  8. KAPIDEX [Concomitant]
     Indication: GASTROOESOPHAGEAL REFLUX DISEASE
     Dosage: DURATION: 6 MONTHS
  9. LYRICA [Concomitant]
     Indication: ARTHRITIS
     Dosage: DURATION: 3 YEARS
  10. METHYLPREDNISOLONE 4MG TAB [Concomitant]
     Indication: ARTHRITIS
     Dosage: DURATION: 3 YEARS
  11. DILTIAZEM [Concomitant]
     Indication: HYPERTENSION
     Dosage: DURATION: 5 YEARS

REACTIONS (2)
  - ACCIDENT [None]
  - NEOPLASM MALIGNANT [None]
